FAERS Safety Report 9541045 (Version 2)
Quarter: 2013Q4

REPORT INFORMATION
  Report Type: Spontaneous
  Country: US (occurrence: US)
  Receive Date: 20130922
  Receipt Date: 20131120
  Transmission Date: 20140711
  Serious: No
  Sender: FDA-Public Use
  Company Number: US-009507513-1309USA006410

PATIENT
  Age: 20 Year
  Sex: Female
  Weight: 63.95 kg

DRUGS (1)
  1. NEXPLANON [Suspect]
     Dosage: 1 ROD/ THREE YEARS
     Route: 059
     Dates: start: 20130628, end: 20131018

REACTIONS (2)
  - Device breakage [Recovered/Resolved]
  - No adverse event [Unknown]
